FAERS Safety Report 11440706 (Version 1)
Quarter: 2015Q3

REPORT INFORMATION
  Report Type: Spontaneous
  Country: US (occurrence: None)
  Receive Date: 20150831
  Receipt Date: 20150831
  Transmission Date: 20151125
  Serious: Yes (Disabling)
  Sender: FDA-Public Use
  Company Number: None

PATIENT
  Age: 29 Year
  Sex: Female
  Weight: 87.09 kg

DRUGS (4)
  1. PROPRANOLOL [Suspect]
     Active Substance: PROPRANOLOL\PROPRANOLOL HYDROCHLORIDE
     Indication: CARDIAC DISORDER
     Dosage: 3 PILLS
  2. INVEGA [Concomitant]
     Active Substance: PALIPERIDONE
  3. PROPRANOLOL [Suspect]
     Active Substance: PROPRANOLOL\PROPRANOLOL HYDROCHLORIDE
     Indication: ANXIETY
     Dosage: 3 PILLS
  4. DEPOKOTE [Concomitant]

REACTIONS (6)
  - Unevaluable event [None]
  - Feeling abnormal [None]
  - Hypersensitivity [None]
  - Hypoaesthesia oral [None]
  - Hypoaesthesia [None]
  - Product quality issue [None]

NARRATIVE: CASE EVENT DATE: 20150827
